FAERS Safety Report 16678412 (Version 1)
Quarter: 2019Q3

REPORT INFORMATION
  Report Type: Spontaneous
  Country: US (occurrence: US)
  Receive Date: 20190806
  Receipt Date: 20190806
  Transmission Date: 20191004
  Serious: Yes (Other)
  Sender: FDA-Public Use
  Company Number: None

PATIENT
  Age: 66 Year
  Sex: Female
  Weight: 81.9 kg

DRUGS (1)
  1. IBRANCE [Suspect]
     Active Substance: PALBOCICLIB
     Indication: BREAST CANCER
     Route: 048
     Dates: start: 20190218, end: 20190806

REACTIONS (5)
  - Balance disorder [None]
  - Arthralgia [None]
  - Fatigue [None]
  - Joint stiffness [None]
  - Mobility decreased [None]

NARRATIVE: CASE EVENT DATE: 20190806
